FAERS Safety Report 10440703 (Version 1)
Quarter: 2014Q3

REPORT INFORMATION
  Report Type: Spontaneous
  Country: US (occurrence: None)
  Receive Date: 20140908
  Receipt Date: 20140908
  Transmission Date: 20150326
  Serious: Yes (Other)
  Sender: FDA-Public Use
  Company Number: None

PATIENT
  Age: 79 Year
  Sex: Female
  Weight: 49.9 kg

DRUGS (1)
  1. MONTELUKAST SODIUM. [Suspect]
     Active Substance: MONTELUKAST SODIUM
     Indication: ASTHMA
     Route: 048
     Dates: start: 20140731, end: 20140901

REACTIONS (5)
  - Memory impairment [None]
  - Paranoia [None]
  - Anxiety [None]
  - Product substitution issue [None]
  - Nightmare [None]

NARRATIVE: CASE EVENT DATE: 20140731
